FAERS Safety Report 12876733 (Version 1)
Quarter: 2016Q4

REPORT INFORMATION
  Report Type: Spontaneous
  Country: US (occurrence: US)
  Receive Date: 20161021
  Receipt Date: 20161021
  Transmission Date: 20170207
  Serious: No
  Sender: FDA-Public Use
  Company Number: None

PATIENT
  Age: 60 Year
  Sex: Female

DRUGS (1)
  1. REPATHA [Suspect]
     Active Substance: EVOLOCUMAB
     Indication: TYPE IIA HYPERLIPIDAEMIA
     Dosage: 1 PEN EVERY 2 WEEKS
     Dates: start: 20160325

REACTIONS (3)
  - Pain in extremity [None]
  - Cough [None]
  - Visual impairment [None]

NARRATIVE: CASE EVENT DATE: 20160927
